FAERS Safety Report 17184619 (Version 1)
Quarter: 2019Q4

REPORT INFORMATION
  Report Type: Spontaneous
  Country: US (occurrence: US)
  Receive Date: 20191127
  Receipt Date: 20191127
  Transmission Date: 20200122
  Serious: Yes (Hospitalization)
  Sender: FDA-Public Use
  Company Number: None

PATIENT
  Sex: Female
  Weight: 70.9 kg

DRUGS (2)
  1. DOXIL [Concomitant]
     Active Substance: DOXORUBICIN HYDROCHLORIDE
  2. BEVACIZUMAB (RHUMAB VEGF) (704865) [Suspect]
     Active Substance: BEVACIZUMAB

REACTIONS (8)
  - Asthenia [None]
  - Hypertension [None]
  - Pyrexia [None]
  - Hyponatraemia [None]
  - Hypoxia [None]
  - Dyspnoea [None]
  - Posterior reversible encephalopathy syndrome [None]
  - Polydipsia [None]

NARRATIVE: CASE EVENT DATE: 20190317
